FAERS Safety Report 19846164 (Version 1)
Quarter: 2021Q3

REPORT INFORMATION
  Report Type: Spontaneous
  Country: US (occurrence: US)
  Receive Date: 20210916
  Receipt Date: 20210916
  Transmission Date: 20211014
  Serious: Yes (Hospitalization)
  Sender: FDA-Public Use
  Company Number: None

PATIENT
  Sex: Female
  Weight: 179.6 kg

DRUGS (1)
  1. ASPIRIN. [Suspect]
     Active Substance: ASPIRIN
     Dates: end: 20210518

REACTIONS (9)
  - Abdominal pain [None]
  - Nausea [None]
  - Wound dehiscence [None]
  - Skin graft [None]
  - Diarrhoea [None]
  - Breast reconstruction [None]
  - Postoperative wound complication [None]
  - Vomiting [None]
  - Postoperative wound infection [None]

NARRATIVE: CASE EVENT DATE: 20210519
